FAERS Safety Report 12078690 (Version 1)
Quarter: 2016Q1

REPORT INFORMATION
  Report Type: Spontaneous
  Country: US (occurrence: US)
  Receive Date: 20160216
  Receipt Date: 20160216
  Transmission Date: 20160526
  Serious: No
  Sender: FDA-Public Use
  Company Number: US-ASTRAZENECA-2016SE12601

PATIENT
  Age: 524 Month
  Sex: Female
  Weight: 72.6 kg

DRUGS (1)
  1. TUDORZA PRESSAIR [Suspect]
     Active Substance: ACLIDINIUM BROMIDE
     Indication: CHRONIC OBSTRUCTIVE PULMONARY DISEASE
     Dosage: 400 MCG, TWO TIMES A DAY, 60 METERED DOSE INHALER
     Route: 055
     Dates: start: 2015

REACTIONS (5)
  - Drug dose omission [Recovered/Resolved]
  - Dyspnoea [Unknown]
  - Dysphonia [Unknown]
  - Device issue [Unknown]
  - Cough [Unknown]

NARRATIVE: CASE EVENT DATE: 201601
